FAERS Safety Report 6635042-9 (Version None)
Quarter: 2010Q1

REPORT INFORMATION
  Report Type: 
  Country: None (occurrence: None)
  Receive Date: 20100315
  Receipt Date: 20100311
  Transmission Date: 20100710
  Serious: Yes (Other)
  Sender: FDA-Public Use
  Company Number: ES-ROXANE LABORATORIES, INC.-2010-RO-00257RO

PATIENT
  Age: 40 Year
  Sex: Male

DRUGS (5)
  1. LORAZEPAM [Suspect]
     Dosage: 2 MG
  2. VALERIAN [Suspect]
  3. VALERIAN [Suspect]
  4. PASSIONFLOWER [Suspect]
  5. PASSIONFLOWER [Suspect]

REACTIONS (5)
  - ANXIETY [None]
  - DRUG INTERACTION [None]
  - MOVEMENT DISORDER [None]
  - PALPITATIONS [None]
  - SOMNOLENCE [None]
